FAERS Safety Report 9746076 (Version 2)
Quarter: 2015Q3

REPORT INFORMATION
  Report Type: Spontaneous
  Country: GB (occurrence: GB)
  Receive Date: 20131211
  Receipt Date: 20150722
  Transmission Date: 20151125
  Serious: No
  Sender: FDA-Public Use
  Company Number: GB-GILEAD-2009-0024395

PATIENT
  Age: 61 Year
  Sex: Male
  Weight: 78 kg

DRUGS (5)
  1. EFAVIRENZ [Concomitant]
     Active Substance: EFAVIRENZ
  2. ATRIPLA [Suspect]
     Active Substance: EFAVIRENZ\EMTRICITABINE\TENOFOVIR DISOPROXIL FUMARATE
     Indication: HIV INFECTION
     Dates: start: 20081120, end: 20081130
  3. MULTIBIONTA [Concomitant]
     Active Substance: MINERALS\PROBIOTICS NOS\VITAMINS
  4. TRUVADA [Concomitant]
     Active Substance: EMTRICITABINE\TENOFOVIR DISOPROXIL FUMARATE
  5. ORAL EYE Q [Concomitant]

REACTIONS (1)
  - Unevaluable event [Recovered/Resolved]

NARRATIVE: CASE EVENT DATE: 20081121
